FAERS Safety Report 7412539-5 (Version None)
Quarter: 2011Q2

REPORT INFORMATION
  Report Type: 
  Country: None (occurrence: None)
  Receive Date: 20110408
  Receipt Date: 20110408
  Transmission Date: 20111010
  Serious: Yes (Other)
  Sender: FDA-Public Use
  Company Number: None

PATIENT
  Age: 45 Year
  Sex: Female
  Weight: 58.0604 kg

DRUGS (2)
  1. LEXAPRO [Suspect]
  2. SYNTHROID [Concomitant]

REACTIONS (3)
  - CHEILITIS [None]
  - GINGIVAL DISORDER [None]
  - RASH [None]
